FAERS Safety Report 8321477-5 (Version None)
Quarter: 2012Q2

REPORT INFORMATION
  Report Type: 
  Country: None (occurrence: None)
  Receive Date: 20120430
  Receipt Date: 20120430
  Transmission Date: 20120825
  Serious: Yes (Other)
  Sender: FDA-Public Use
  Company Number: None

PATIENT
  Age: 42 Year
  Sex: Male
  Weight: 112.94 kg

DRUGS (1)
  1. METRONIDAZOLE [Suspect]
     Dosage: ONE PILL
     Route: 048
     Dates: start: 20120422, end: 20120427

REACTIONS (6)
  - MUSCULOSKELETAL STIFFNESS [None]
  - BURNING SENSATION [None]
  - ABDOMINAL PAIN LOWER [None]
  - DIZZINESS [None]
  - NAUSEA [None]
  - HYPOAESTHESIA [None]
